FAERS Safety Report 6568619-X (Version None)
Quarter: 2010Q1

REPORT INFORMATION
  Report Type: 
  Country: None (occurrence: None)
  Receive Date: 20100203
  Receipt Date: 20100126
  Transmission Date: 20100710
  Serious: Yes (Death)
  Sender: FDA-Public Use
  Company Number: US-SANOFI-AVENTIS-2009SA008509

PATIENT
  Sex: Female

DRUGS (1)
  1. APIDRA [Suspect]
     Route: 058

REACTIONS (3)
  - BLOOD GLUCOSE INCREASED [None]
  - DEATH [None]
  - DRUG INEFFECTIVE [None]
